APPROVED DRUG PRODUCT: METRONIDAZOLE
Active Ingredient: METRONIDAZOLE
Strength: 1%
Dosage Form/Route: GEL;TOPICAL
Application: A204651 | Product #001 | TE Code: AB
Applicant: TARO PHARMACEUTICAL INDUSTRIES LTD
Approved: Mar 14, 2017 | RLD: No | RS: No | Type: RX